FAERS Safety Report 9640750 (Version 1)
Quarter: 2013Q4

REPORT INFORMATION
  Report Type: Spontaneous
  Country: US (occurrence: None)
  Receive Date: 20131022
  Receipt Date: 20131022
  Transmission Date: 20140711
  Serious: No
  Sender: FDA-Public Use
  Company Number: None

PATIENT
  Age: 24 Year
  Sex: Female
  Weight: 99.79 kg

DRUGS (1)
  1. DIFFERIN [Suspect]
     Indication: ACNE
     Dosage: APLLIED TO A SURFACE, USUALLY THE SKIN

REACTIONS (1)
  - Rash [None]
